FAERS Safety Report 4730845-X (Version None)
Quarter: 2005Q3

REPORT INFORMATION
  Report Type: 
  Country: None (occurrence: None)
  Receive Date: 20050719
  Receipt Date: 20040721
  Transmission Date: 20060218
  Serious: Yes (Hospitalization)
  Sender: FDA-Public Use
  Company Number: 191318

PATIENT
  Age: 43 Year
  Sex: Male
  Weight: 127.0072 kg

DRUGS (2)
  1. AVONEX [Suspect]
     Indication: MULTIPLE SCLEROSIS
     Dosage: 30 UG;QW;IM
     Route: 030
     Dates: start: 20000101
  2. TYLENOL [Concomitant]

REACTIONS (6)
  - ARTHRALGIA [None]
  - DEPRESSION [None]
  - MULTIPLE SCLEROSIS RELAPSE [None]
  - SKIN DISCOLOURATION [None]
  - VOMITING [None]
  - WEIGHT INCREASED [None]
